FAERS Safety Report 25272365 (Version 6)
Quarter: 2025Q2

REPORT INFORMATION
  Report Type: Report from Study
  Country: CO (occurrence: CO)
  Receive Date: 20250506
  Receipt Date: 20250619
  Transmission Date: 20250717
  Serious: Yes (Hospitalization)
  Sender: TAKEDA
  Company Number: CO-TAKEDA-2024TUS094992

PATIENT
  Age: 2 Year
  Sex: Male
  Weight: 17 kg

DRUGS (6)
  1. IDURSULFASE [Suspect]
     Active Substance: IDURSULFASE
     Indication: Mucopolysaccharidosis II
     Dosage: 8 MILLIGRAM, 1/WEEK
     Dates: start: 20240912
  2. IDURSULFASE [Suspect]
     Active Substance: IDURSULFASE
     Dosage: 9 MILLIGRAM, 1/WEEK
  3. IDURSULFASE [Suspect]
     Active Substance: IDURSULFASE
     Dosage: 9.25 MILLIGRAM, 1/WEEK
  4. IDURSULFASE [Suspect]
     Active Substance: IDURSULFASE
     Dosage: 9.5 MILLIGRAM, 1/WEEK
  5. IDURSULFASE [Suspect]
     Active Substance: IDURSULFASE
     Dosage: 10 MILLIGRAM, 1/WEEK
  6. HYDROCORTISONE [Concomitant]
     Active Substance: HYDROCORTISONE
     Indication: Premedication

REACTIONS (27)
  - Drug hypersensitivity [Recovered/Resolved]
  - Product prescribing error [Unknown]
  - Incorrect dose administered [Unknown]
  - General physical health deterioration [Unknown]
  - Lip discolouration [Unknown]
  - Pallor [Unknown]
  - Product availability issue [Unknown]
  - Malaise [Recovering/Resolving]
  - Abdominal pain [Unknown]
  - Umbilical hernia [Unknown]
  - Product use issue [Unknown]
  - Inflammation [Unknown]
  - Influenza [Recovered/Resolved]
  - Vascular access site extravasation [Recovered/Resolved]
  - Poor venous access [Recovered/Resolved]
  - Inappropriate schedule of product administration [Unknown]
  - Weight increased [Unknown]
  - Productive cough [Unknown]
  - Nasal congestion [Unknown]
  - Treatment noncompliance [Unknown]
  - Crying [Recovered/Resolved]
  - Epistaxis [Recovered/Resolved]
  - Pain [Recovered/Resolved]
  - Cough [Recovered/Resolved]
  - Diarrhoea [Recovered/Resolved]
  - Pyrexia [Recovered/Resolved]
  - Vomiting [Recovering/Resolving]

NARRATIVE: CASE EVENT DATE: 20240912
